FAERS Safety Report 18731474 (Version 3)
Quarter: 2021Q1

REPORT INFORMATION
  Report Type: Spontaneous
  Country: US (occurrence: US)
  Receive Date: 20210112
  Receipt Date: 20210212
  Transmission Date: 20210419
  Serious: Yes (Life-Threatening, Other)
  Sender: FDA-Public Use
  Company Number: US-ASTRAZENECA-2021A000258

PATIENT
  Age: 56 Year
  Sex: Female
  Weight: 36.7 kg

DRUGS (9)
  1. SYMBICORT [Suspect]
     Active Substance: BUDESONIDE\FORMOTEROL FUMARATE DIHYDRATE
     Indication: EMPHYSEMA
     Dosage: 160/4.5 MCG, 2 PUFFS AT NIGHT
     Route: 055
     Dates: start: 1990
  2. SYMBICORT [Suspect]
     Active Substance: BUDESONIDE\FORMOTEROL FUMARATE DIHYDRATE
     Indication: CHRONIC OBSTRUCTIVE PULMONARY DISEASE
     Dosage: 160/4.5 MCG TWO TIMES A DAY
     Route: 055
  3. ALBUTEROL. [Concomitant]
     Active Substance: ALBUTEROL
  4. HYDROCODONE [Concomitant]
     Active Substance: HYDROCODONE
  5. HUMERA [Concomitant]
     Active Substance: ADALIMUMAB
  6. SYMBICORT [Suspect]
     Active Substance: BUDESONIDE\FORMOTEROL FUMARATE DIHYDRATE
     Indication: EMPHYSEMA
     Dosage: 160/4.5 MCG TWO TIMES A DAY
     Route: 055
  7. SYMBICORT [Suspect]
     Active Substance: BUDESONIDE\FORMOTEROL FUMARATE DIHYDRATE
     Indication: CHRONIC OBSTRUCTIVE PULMONARY DISEASE
     Dosage: 160/4.5 MCG, 2 PUFFS AT NIGHT
     Route: 055
     Dates: start: 1990
  8. TIZANIDINE. [Concomitant]
     Active Substance: TIZANIDINE
  9. NASAL SPRAY [Concomitant]
     Active Substance: UNSPECIFIED INGREDIENT
     Indication: BONE DISORDER

REACTIONS (21)
  - Fall [Unknown]
  - Nail infection [Unknown]
  - Illness [Unknown]
  - Amnesia [Unknown]
  - Spinal fracture [Unknown]
  - Intentional device misuse [Unknown]
  - Wrong technique in device usage process [Recovered/Resolved]
  - Nail psoriasis [Unknown]
  - Gait disturbance [Unknown]
  - Glaucoma [Unknown]
  - Osteoporosis [Unknown]
  - Accident [Unknown]
  - Body height decreased [Unknown]
  - Weight decreased [Unknown]
  - Coma [Unknown]
  - Visual impairment [Unknown]
  - Device defective [Unknown]
  - Pain [Unknown]
  - Wheezing [Recovered/Resolved]
  - Asthenia [Unknown]
  - Cataract [Unknown]

NARRATIVE: CASE EVENT DATE: 2001
